FAERS Safety Report 8967994 (Version 2)
Quarter: 2013Q1

REPORT INFORMATION
  Report Type: Spontaneous
  Country: FR (occurrence: FR)
  Receive Date: 20121217
  Receipt Date: 20130123
  Transmission Date: 20140127
  Serious: Yes (Hospitalization)
  Sender: FDA-Public Use
  Company Number: FR-TEVA-375976ISR

PATIENT
  Age: 60 Year
  Sex: Male

DRUGS (8)
  1. AZILECT [Suspect]
     Indication: PARKINSON^S DISEASE
     Route: 048
     Dates: start: 201101, end: 201103
  2. AZILECT [Suspect]
     Dosage: 1 MILLIGRAM DAILY;
     Route: 048
     Dates: start: 20110411
  3. LAMISIL [Suspect]
     Indication: DERMATOPHYTOSIS
     Dates: start: 20110324, end: 201104
  4. TRIDESONIT [Suspect]
     Indication: DERMATOPHYTOSIS
     Route: 003
     Dates: start: 20110406
  5. TRIVASTAL LP 50 [Concomitant]
     Dosage: 2DF/1/1/1
  6. SYMBICORT [Concomitant]
     Dosage: 2 DOSAGE FORMS DAILY; 2 INSUFFLATIONS IN THE MORNING
     Route: 055
  7. APROVEL 75MG [Concomitant]
     Dosage: 1 DOSAGE FORMS DAILY;
  8. SIMVASTATINE 20MG [Concomitant]
     Dosage: 1 DOSAGE FORMS DAILY;

REACTIONS (1)
  - Toxic skin eruption [Recovered/Resolved]
